FAERS Safety Report 6365031-3 (Version None)
Quarter: 2009Q3

REPORT INFORMATION
  Report Type: 
  Country: None (occurrence: None)
  Receive Date: 20090919
  Receipt Date: 20090803
  Transmission Date: 20100115
  Serious: No
  Sender: FDA-Public Use
  Company Number: US-ABBOTT-09P-163-0589535-00

PATIENT
  Sex: Female

DRUGS (2)
  1. HUMIRA [Suspect]
     Indication: RHEUMATOID ARTHRITIS
     Route: 058
     Dates: start: 20060101
  2. SYNTHROID [Concomitant]
     Indication: BASEDOW'S DISEASE
     Route: 048

REACTIONS (3)
  - DRUG DOSE OMISSION [None]
  - INJECTION SITE PRURITUS [None]
  - PAIN IN EXTREMITY [None]
